FAERS Safety Report 17931844 (Version 1)
Quarter: 2020Q2

REPORT INFORMATION
  Report Type: Spontaneous
  Country: ES (occurrence: ES)
  Receive Date: 20200624
  Receipt Date: 20200624
  Transmission Date: 20200714
  Serious: Yes (Other)
  Sender: FDA-Public Use
  Company Number: ES-TEVA-2020-ES-1789670

PATIENT
  Age: 75 Year
  Sex: Male

DRUGS (10)
  1. AZITROMICINA (7019A) [Interacting]
     Active Substance: AZITHROMYCIN
     Indication: COVID-19 PNEUMONIA
     Dosage: 500 MG
     Route: 042
     Dates: start: 20200323, end: 20200326
  2. LOSARTAN (7157A) [Concomitant]
     Active Substance: LOSARTAN
     Indication: HYPERTENSION
     Dosage: 50 MG
     Route: 048
     Dates: start: 20200317, end: 20200410
  3. LEVOFLOXACINO (2791A) [Interacting]
     Active Substance: LEVOFLOXACIN
     Indication: COVID-19 PNEUMONIA
     Dosage: 500 MG
     Route: 048
     Dates: start: 20200316, end: 20200319
  4. OSELTAMIVIR (2885A) [Concomitant]
     Active Substance: OSELTAMIVIR
     Indication: COVID-19 PNEUMONIA
     Dosage: 75 MG
     Route: 048
     Dates: start: 20200316, end: 20200318
  5. NOVORAPID 100 U/ML SOLUCION INYECTABLE EN VIAL, 1 VIAL DE 10 ML [Concomitant]
     Indication: TYPE 2 DIABETES MELLITUS
     Dosage: 10 IU
     Route: 058
     Dates: start: 20200316, end: 20200410
  6. ENOXAPARINA SODICA (2482SO) [Concomitant]
     Active Substance: ENOXAPARIN SODIUM
     Indication: THROMBOSIS PROPHYLAXIS
     Dosage: 40 MG
     Route: 058
     Dates: start: 20200317, end: 20200410
  7. KALETRA [Interacting]
     Active Substance: LOPINAVIR\RITONAVIR
     Indication: COVID-19 PNEUMONIA
     Dosage: 2 DF
     Route: 048
     Dates: start: 20200323, end: 20200326
  8. TOCILIZUMAB (8289A) [Concomitant]
     Active Substance: TOCILIZUMAB
     Indication: COVID-19 PNEUMONIA
     Dosage: 600 MG
     Route: 042
     Dates: start: 20200326, end: 20200326
  9. HIDROXICLOROQUINA SULFATO (2143SU) [Suspect]
     Active Substance: HYDROXYCHLOROQUINE SULFATE
     Indication: COVID-19 PNEUMONIA
     Dosage: 400 MG
     Route: 048
     Dates: start: 20200320, end: 20200325
  10. PIPERACILINA + TAZOBACTAM [Concomitant]
     Active Substance: PIPERACILLIN SODIUM\TAZOBACTAM SODIUM
     Indication: COVID-19 PNEUMONIA
     Dosage: 1 DF
     Route: 042
     Dates: start: 20200319, end: 20200325

REACTIONS (2)
  - Long QT syndrome [Recovered/Resolved]
  - Drug interaction [Unknown]

NARRATIVE: CASE EVENT DATE: 20200326
